FAERS Safety Report 9098557 (Version 2)
Quarter: 2013Q1

REPORT INFORMATION
  Report Type: Report from Study
  Country: FR (occurrence: FR)
  Receive Date: 20130213
  Receipt Date: 20130319
  Transmission Date: 20140127
  Serious: Yes (Other)
  Sender: FDA-Public Use
  Company Number: FR-US-EMD SERONO, INC.-7192892

PATIENT
  Age: 27 Year
  Sex: Female

DRUGS (5)
  1. REBIF [Suspect]
     Indication: MULTIPLE SCLEROSIS
     Route: 058
     Dates: start: 20130205
  2. INSULIN [Concomitant]
     Indication: DIABETES MELLITUS
  3. DEPAKINE CHRONO [Concomitant]
     Indication: EPILEPSY
     Route: 048
     Dates: start: 2008
  4. KEPPRA [Concomitant]
     Indication: EPILEPSY
     Route: 048
     Dates: start: 201210
  5. LEELOO [Concomitant]
     Indication: CONTRACEPTION
     Route: 048

REACTIONS (4)
  - Diabetes mellitus inadequate control [Recovered/Resolved]
  - Hyperglycaemia [Not Recovered/Not Resolved]
  - Injection site erythema [Not Recovered/Not Resolved]
  - Injection site pain [Not Recovered/Not Resolved]
